FAERS Safety Report 20726247 (Version 1)
Quarter: 2022Q2

REPORT INFORMATION
  Report Type: Spontaneous
  Country: US (occurrence: US)
  Receive Date: 20220419
  Receipt Date: 20220419
  Transmission Date: 20220720
  Serious: No
  Sender: FDA-Public Use
  Company Number: US-SA-SAC20220418000614

PATIENT
  Age: 60 Year
  Sex: Male

DRUGS (11)
  1. DUPIXENT [Suspect]
     Active Substance: DUPILUMAB
     Indication: Dermatitis atopic
     Dosage: 600 MG, 1X
     Route: 058
     Dates: start: 20220323, end: 20220323
  2. DUPIXENT [Suspect]
     Active Substance: DUPILUMAB
     Dosage: 300 MG, QOW
     Route: 058
  3. ENBREL [Concomitant]
     Active Substance: ETANERCEPT
  4. SIMVASTATIN [Concomitant]
     Active Substance: SIMVASTATIN
  5. METHOTREXATE [Concomitant]
     Active Substance: METHOTREXATE
  6. MELOXICAM [Concomitant]
     Active Substance: MELOXICAM
  7. FOLIC ACID [Concomitant]
     Active Substance: FOLIC ACID
  8. RISPERIDONE [Concomitant]
     Active Substance: RISPERIDONE
  9. TYLENOL [Concomitant]
     Active Substance: ACETAMINOPHEN
  10. VITAMIN D3 [Concomitant]
     Active Substance: CHOLECALCIFEROL
  11. TRIPLE OMEGA COMPLEX 3-6-9 [Concomitant]

REACTIONS (1)
  - Arthralgia [Unknown]

NARRATIVE: CASE EVENT DATE: 20220101
